FAERS Safety Report 8242418-5 (Version None)
Quarter: 2012Q1

REPORT INFORMATION
  Report Type: 
  Country: None (occurrence: None)
  Receive Date: 20120329
  Receipt Date: 20120320
  Transmission Date: 20120608
  Serious: Yes (Other)
  Sender: FDA-Public Use
  Company Number: CA-JNJFOC-20120309445

PATIENT
  Sex: Female
  Weight: 59 kg

DRUGS (7)
  1. RHINOCORT [Concomitant]
     Dosage: AS NECESSARY
     Route: 065
     Dates: start: 20100101
  2. ELOCON [Concomitant]
     Indication: RASH
     Route: 065
     Dates: start: 20120201
  3. VENTOLIN [Concomitant]
     Dosage: PUFF
     Route: 065
     Dates: start: 19900101
  4. ADVAIR DISKUS 100/50 [Concomitant]
     Dosage: TWO PUFFS DAILY
     Route: 065
     Dates: start: 20060101
  5. FERROUS GLUCONATE [Concomitant]
     Dosage: 250MCG
     Route: 065
     Dates: start: 20120201
  6. PROTOPIC [Concomitant]
     Dosage: AS NECESSARY
     Route: 065
     Dates: start: 20111201
  7. REMICADE [Suspect]
     Indication: ANKYLOSING SPONDYLITIS
     Route: 042

REACTIONS (3)
  - BLEPHARITIS [None]
  - DERMATITIS ATOPIC [None]
  - AMYLOIDOSIS [None]
